FAERS Safety Report 10077803 (Version 5)
Quarter: 2014Q2

REPORT INFORMATION
  Report Type: Report from Study
  Country: NZ (occurrence: NZ)
  Receive Date: 20140414
  Receipt Date: 20140515
  Transmission Date: 20141212
  Serious: Yes (Hospitalization, Other)
  Sender: FDA-Public Use
  Company Number: PHHY2014NZ044299

PATIENT
  Age: 38 Year
  Sex: Female
  Weight: 81.6 kg

DRUGS (5)
  1. CLOZARIL [Suspect]
     Indication: SCHIZOPHRENIA
     Dosage: 300 MG (NOCTE)
     Route: 048
     Dates: start: 20140312, end: 20140407
  2. GLICLAZIDE [Concomitant]
     Dosage: 160 MG, BID
     Route: 048
  3. HALOPERIDOL [Concomitant]
     Dosage: 5 MG, BID
     Route: 048
  4. METFORMIN [Concomitant]
     Dosage: 1 G, BID
     Route: 048
  5. SIMVASTATIN [Concomitant]
     Dosage: 20 MG (DAILY)
     Route: 048

REACTIONS (28)
  - Lymph node pain [Unknown]
  - C-reactive protein increased [Unknown]
  - White blood cell count increased [Unknown]
  - Body temperature increased [Unknown]
  - Neutropenia [Recovered/Resolved]
  - White blood cell count decreased [Recovered/Resolved]
  - Platelet count increased [Unknown]
  - Fatigue [Unknown]
  - Agranulocytosis [Recovered/Resolved]
  - Blood sodium decreased [Recovered/Resolved]
  - Blood calcium decreased [Recovered/Resolved]
  - Blood alkaline phosphatase increased [Unknown]
  - Blood albumin decreased [Unknown]
  - Blood urea decreased [Unknown]
  - Blood potassium increased [Recovered/Resolved]
  - Haematocrit decreased [Unknown]
  - Carboxyhaemoglobin increased [Unknown]
  - Mean cell volume decreased [Recovered/Resolved]
  - Mean cell haemoglobin decreased [Unknown]
  - Glomerular filtration rate decreased [Recovered/Resolved]
  - Lymphocyte count decreased [Recovered/Resolved]
  - Monocyte count decreased [Recovered/Resolved]
  - Anaemia [Unknown]
  - Neutrophil count increased [Unknown]
  - Eosinophil count increased [Recovered/Resolved]
  - Antipsychotic drug level increased [Unknown]
  - Gamma-glutamyltransferase increased [Unknown]
  - Alanine aminotransferase increased [Unknown]
